FAERS Safety Report 12507561 (Version 2)
Quarter: 2016Q3

REPORT INFORMATION
  Report Type: Spontaneous
  Country: CO (occurrence: CO)
  Receive Date: 20160629
  Receipt Date: 20160708
  Transmission Date: 20161109
  Serious: Yes (Hospitalization, Other)
  Sender: FDA-Public Use
  Company Number: CO-ROCHE-1776057

PATIENT
  Sex: Male

DRUGS (1)
  1. LUCENTIS [Suspect]
     Active Substance: RANIBIZUMAB
     Indication: PRODUCT USED FOR UNKNOWN INDICATION
     Dosage: UNK (2.3 MG)
     Route: 050
     Dates: start: 20160602, end: 20160602

REACTIONS (4)
  - Eye infection [Unknown]
  - Vitreous detachment [Unknown]
  - Vitreous haemorrhage [Unknown]
  - Eye pain [Unknown]

NARRATIVE: CASE EVENT DATE: 20160607
